FAERS Safety Report 10153071 (Version 1)
Quarter: 2014Q2

REPORT INFORMATION
  Report Type: Spontaneous
  Country: BR (occurrence: BR)
  Receive Date: 20140505
  Receipt Date: 20140505
  Transmission Date: 20141212
  Serious: Yes (Hospitalization)
  Sender: FDA-Public Use
  Company Number: BR-PFIZER INC-2014117903

PATIENT
  Age: 58 Year
  Sex: Female
  Weight: 64 kg

DRUGS (3)
  1. LIPITOR [Suspect]
     Indication: BLOOD CHOLESTEROL INCREASED
     Dosage: 20 MG, DAILY
     Route: 048
     Dates: start: 20140306
  2. GLIFAGE [Concomitant]
     Indication: DIABETES MELLITUS
     Dosage: 500 MG, 2X/DAY (1 AFTER LUNCH AND 1 AFTER DINNER)
     Dates: start: 201312
  3. JANUVIA [Concomitant]
     Indication: DIABETES MELLITUS
     Dosage: 1 AFTER BREASKFAST
     Dates: start: 201402

REACTIONS (4)
  - Gallbladder disorder [Unknown]
  - Cholelithiasis [Unknown]
  - Varicose vein [Unknown]
  - Blood glucose increased [Not Recovered/Not Resolved]
